FAERS Safety Report 6505529-8 (Version None)
Quarter: 2009Q4

REPORT INFORMATION
  Report Type: 
  Country: None (occurrence: None)
  Receive Date: 20091217
  Receipt Date: 20091217
  Transmission Date: 20100525
  Serious: Yes (Hospitalization)
  Sender: FDA-Public Use
  Company Number: None

PATIENT
  Age: 37 Year
  Sex: Female
  Weight: 56.6996 kg

DRUGS (1)
  1. AMPHETAMINE SALTS TBLETS 20 MG TARGET PHARMACY [Suspect]
     Indication: CENTRAL NERVOUS SYSTEM STIMULATION
     Dosage: 20 MG ONCE IN THE MORNIN PO
     Route: 048
     Dates: start: 20090601, end: 20091213

REACTIONS (8)
  - ANXIETY [None]
  - BLOOD PRESSURE INCREASED [None]
  - DIARRHOEA [None]
  - HYPERHIDROSIS [None]
  - MENTAL STATUS CHANGES [None]
  - PALPITATIONS [None]
  - PERSONALITY CHANGE [None]
  - SUICIDAL IDEATION [None]
